FAERS Safety Report 25994881 (Version 1)
Quarter: 2025Q4

REPORT INFORMATION
  Report Type: Spontaneous
  Country: US (occurrence: US)
  Receive Date: 20251104
  Receipt Date: 20251104
  Transmission Date: 20260117
  Serious: Yes (Life-Threatening, Hospitalization, Other)
  Sender: ROCHE
  Company Number: US-BoehringerIngelheim-2025-BI-103911

PATIENT
  Age: 54 Year
  Sex: Female

DRUGS (16)
  1. ALTEPLASE [Suspect]
     Active Substance: ALTEPLASE
     Indication: Product used for unknown indication
     Route: 065
  2. MIDAZOLAM [Concomitant]
     Active Substance: MIDAZOLAM
     Indication: Prophylaxis
  3. MIDAZOLAM [Concomitant]
     Active Substance: MIDAZOLAM
     Indication: Anticoagulant therapy
  4. FENTANYL [Concomitant]
     Active Substance: FENTANYL
     Indication: Prophylaxis
  5. FENTANYL [Concomitant]
     Active Substance: FENTANYL
     Indication: Anticoagulant therapy
  6. PROPOFOL [Concomitant]
     Active Substance: PROPOFOL
     Indication: Anticoagulant therapy
  7. PROPOFOL [Concomitant]
     Active Substance: PROPOFOL
     Indication: Prophylaxis
  8. ROCURONIUM [Concomitant]
     Active Substance: ROCURONIUM BROMIDE
     Indication: Prophylaxis
  9. ROCURONIUM [Concomitant]
     Active Substance: ROCURONIUM BROMIDE
     Indication: Anticoagulant therapy
  10. SEVOFLURANE [Concomitant]
     Active Substance: SEVOFLURANE
     Indication: Anticoagulant therapy
  11. SEVOFLURANE [Concomitant]
     Active Substance: SEVOFLURANE
     Indication: Prophylaxis
  12. CEFAZOLIN [Concomitant]
     Active Substance: CEFAZOLIN
     Indication: Prophylaxis
  13. CEFAZOLIN [Concomitant]
     Active Substance: CEFAZOLIN
     Indication: Anticoagulant therapy
  14. BIVALIRUDIN [Concomitant]
     Active Substance: BIVALIRUDIN
     Indication: Anticoagulant therapy
  15. BIVALIRUDIN [Concomitant]
     Active Substance: BIVALIRUDIN
     Indication: Prophylaxis
  16. PHENYLEPHRINE [Concomitant]
     Active Substance: PHENYLEPHRINE
     Indication: Vasoconstriction
     Dosage: 10-30MCG PER MIN

REACTIONS (13)
  - Acute respiratory failure [Recovered/Resolved]
  - Pulmonary congestion [Unknown]
  - Cardiogenic shock [Recovered/Resolved]
  - Condition aggravated [Unknown]
  - Lactic acidosis [Unknown]
  - Distributive shock [Recovered/Resolved]
  - Stress cardiomyopathy [Unknown]
  - Hypotension [Not Recovered/Not Resolved]
  - Lung hypoinflation [Unknown]
  - Ventricular hypokinesia [Not Recovered/Not Resolved]
  - Mitral valve incompetence [Unknown]
  - Ejection fraction decreased [Recovered/Resolved]
  - Dermatitis allergic [Unknown]
